FAERS Safety Report 5594687-8 (Version None)
Quarter: 2008Q1

REPORT INFORMATION
  Report Type: 
  Country: None (occurrence: None)
  Receive Date: 20080115
  Receipt Date: 20080107
  Transmission Date: 20080703
  Serious: Yes (Other)
  Sender: FDA-Public Use
  Company Number: 2008000522

PATIENT
  Age: 58 Year
  Sex: Female

DRUGS (5)
  1. PSEUDOEPHEDRINE HCL [Suspect]
     Indication: NASAL CONGESTION
     Dosage: 15 TABELTS PER DAY, ORAL
     Route: 048
  2. EFFEXOR [Concomitant]
  3. TRAMADOL HCL [Concomitant]
  4. ACETAMINOPHEN [Concomitant]
  5. DAFLON (DIOSMIN) [Concomitant]

REACTIONS (3)
  - AGITATION [None]
  - MYDRIASIS [None]
  - OVERDOSE [None]
